FAERS Safety Report 11785696 (Version 1)
Quarter: 2015Q4

REPORT INFORMATION
  Report Type: Spontaneous
  Country: JP (occurrence: JP)
  Receive Date: 20151130
  Receipt Date: 20151130
  Transmission Date: 20160305
  Serious: Yes (Death)
  Sender: FDA-Public Use
  Company Number: JP-TEVA-611492ISR

PATIENT
  Sex: Male
  Weight: 55 kg

DRUGS (6)
  1. FENTANYL CITRATE. [Concomitant]
     Active Substance: FENTANYL CITRATE
     Indication: CANCER PAIN
     Dosage: 4 MILLIGRAM DAILY;
     Route: 065
     Dates: start: 20141202, end: 20141205
  2. FENTANYL CITRATE. [Concomitant]
     Active Substance: FENTANYL CITRATE
     Dosage: 2 MILLIGRAM DAILY;
     Route: 065
     Dates: start: 20141028, end: 20141125
  3. E-FEN BUCCAL [Suspect]
     Active Substance: FENTANYL CITRATE
     Indication: BREAKTHROUGH PAIN
     Dosage: 100 MICROGRAM DAILY;
     Route: 002
     Dates: start: 20141122, end: 20141205
  4. E-FEN BUCCAL [Suspect]
     Active Substance: FENTANYL CITRATE
     Dosage: DAILY DOSE: 0-200 MICROGRAM
     Route: 002
     Dates: start: 20141107, end: 20141121
  5. NAPROXEN. [Concomitant]
     Active Substance: NAPROXEN
     Indication: CANCER PAIN
     Dosage: 300 MILLIGRAM DAILY;
     Route: 048
     Dates: start: 20141107, end: 20141205
  6. FENTANYL CITRATE. [Concomitant]
     Active Substance: FENTANYL CITRATE
     Dosage: 3 MILLIGRAM DAILY;
     Route: 065
     Dates: start: 20141126, end: 20141201

REACTIONS (1)
  - Colorectal cancer [Fatal]
